FAERS Safety Report 7403802-2 (Version None)
Quarter: 2011Q2

REPORT INFORMATION
  Report Type: 
  Country: None (occurrence: None)
  Receive Date: 20110408
  Receipt Date: 20110329
  Transmission Date: 20111010
  Serious: Yes (Other)
  Sender: FDA-Public Use
  Company Number: PHHY2011US25947

PATIENT
  Sex: Female

DRUGS (8)
  1. RECLAST [Suspect]
     Indication: OSTEOPOROSIS
     Dosage: YEARLY
     Route: 042
  2. ACTONEL [Suspect]
  3. URSODIOL [Concomitant]
     Dosage: 300 MG, TID
  4. SIMVASTATIN [Concomitant]
     Dosage: 20 MG
  5. LEVOTHYROXINE [Concomitant]
     Dosage: 1.25 UG
  6. LISINOPRIL [Concomitant]
     Dosage: 10 MG
  7. CELEXA [Concomitant]
  8. AMBIEN [Concomitant]
     Dosage: 5 MG, PRN

REACTIONS (2)
  - FALL [None]
  - NEPHROLITHIASIS [None]
